FAERS Safety Report 12168153 (Version 1)
Quarter: 2016Q1

REPORT INFORMATION
  Report Type: Spontaneous
  Country: US (occurrence: None)
  Receive Date: 20160309
  Receipt Date: 20160309
  Transmission Date: 20160526
  Serious: Yes (Hospitalization)
  Sender: FDA-Public Use
  Company Number: None

PATIENT
  Age: 34 Year
  Sex: Female
  Weight: 85.3 kg

DRUGS (2)
  1. DOXORUBICIN HYDROCHLORIDE. [Suspect]
     Active Substance: DOXORUBICIN HYDROCHLORIDE
     Dates: end: 20160215
  2. CYCLOPHOSPHAMIDE. [Suspect]
     Active Substance: CYCLOPHOSPHAMIDE
     Dates: end: 20160215

REACTIONS (6)
  - Pain in extremity [None]
  - Actinomyces test positive [None]
  - Abscess [None]
  - Vomiting [None]
  - Purulent discharge [None]
  - Nausea [None]

NARRATIVE: CASE EVENT DATE: 20160226
